FAERS Safety Report 15664220 (Version 2)
Quarter: 2019Q2

REPORT INFORMATION
  Report Type: Spontaneous
  Country: CA (occurrence: CA)
  Receive Date: 20181128
  Receipt Date: 20190516
  Transmission Date: 20190711
  Serious: Yes (Hospitalization)
  Sender: FDA-Public Use
  Company Number: CA-SUN PHARMACEUTICAL INDUSTRIES LTD-2018R1-192001

PATIENT
  Age: 8 Year
  Sex: Female
  Weight: 27.4 kg

DRUGS (4)
  1. GUANFACINE. [Suspect]
     Active Substance: GUANFACINE
     Indication: ATTENTION DEFICIT/HYPERACTIVITY DISORDER
     Dosage: UNK
     Route: 065
  2. GUANFACINE. [Suspect]
     Active Substance: GUANFACINE
     Dosage: 2 MILLIGRAM, DAILY, TAPERED
     Route: 065
  3. GUANFACINE. [Suspect]
     Active Substance: GUANFACINE
     Dosage: 3 MILLIGRAM, DAILY
     Route: 065
  4. GUANFACINE. [Suspect]
     Active Substance: GUANFACINE
     Dosage: RAISED TO 3 MILLIGRAM, DAILY
     Route: 065

REACTIONS (9)
  - Electrocardiogram QT shortened [Unknown]
  - Somnolence [Recovered/Resolved]
  - Autonomic nervous system imbalance [Unknown]
  - Bradypnoea [Unknown]
  - Respiratory acidosis [Unknown]
  - Sinus bradycardia [Unknown]
  - Atrioventricular dissociation [Unknown]
  - Dizziness [Recovered/Resolved]
  - Hypotension [Recovered/Resolved]
